APPROVED DRUG PRODUCT: CLONIDINE
Active Ingredient: CLONIDINE
Strength: EQ 0.09MG BASE/ML
Dosage Form/Route: SUSPENSION, EXTENDED RELEASE;ORAL
Application: N022499 | Product #001
Applicant: TRIS PHARMA INC
Approved: Dec 3, 2009 | RLD: No | RS: No | Type: DISCN